FAERS Safety Report 23703444 (Version 1)
Quarter: 2024Q2

REPORT INFORMATION
  Report Type: Spontaneous
  Country: ES (occurrence: ES)
  Receive Date: 20240403
  Receipt Date: 20240403
  Transmission Date: 20240715
  Serious: Yes (Other)
  Sender: FDA-Public Use
  Company Number: ES-UCBSA-2024013441

PATIENT
  Age: 1 Month
  Sex: Male

DRUGS (16)
  1. PHENYTOIN [Suspect]
     Active Substance: PHENYTOIN
     Indication: Epilepsy
     Dosage: UNK
     Route: 065
  2. PHENYTOIN [Suspect]
     Active Substance: PHENYTOIN
     Indication: Gene mutation
  3. PHENYTOIN [Suspect]
     Active Substance: PHENYTOIN
     Indication: Epilepsy of infancy with migrating focal seizures
  4. PERAMPANEL [Suspect]
     Active Substance: PERAMPANEL
     Indication: Epilepsy of infancy with migrating focal seizures
     Dosage: UNK
     Route: 065
  5. PERAMPANEL [Suspect]
     Active Substance: PERAMPANEL
     Indication: Epilepsy
  6. PERAMPANEL [Suspect]
     Active Substance: PERAMPANEL
     Indication: Gene mutation
  7. KETAMINE [Suspect]
     Active Substance: KETAMINE
     Indication: Gene mutation
     Dosage: UNK
     Route: 065
  8. KETAMINE [Suspect]
     Active Substance: KETAMINE
     Indication: Epilepsy of infancy with migrating focal seizures
  9. KETAMINE [Suspect]
     Active Substance: KETAMINE
     Indication: Epilepsy
  10. LACOSAMIDE [Suspect]
     Active Substance: LACOSAMIDE
     Indication: Epilepsy of infancy with migrating focal seizures
     Dosage: UNK
     Route: 065
  11. LACOSAMIDE [Suspect]
     Active Substance: LACOSAMIDE
     Indication: Epilepsy
  12. LACOSAMIDE [Suspect]
     Active Substance: LACOSAMIDE
     Indication: Gene mutation
  13. MIDAZOLAM [Suspect]
     Active Substance: MIDAZOLAM
     Indication: Epilepsy of infancy with migrating focal seizures
     Dosage: 0.5 MILLIGRAM/KILOGRAM
  14. MIDAZOLAM [Suspect]
     Active Substance: MIDAZOLAM
     Indication: Epilepsy
  15. MIDAZOLAM [Suspect]
     Active Substance: MIDAZOLAM
     Indication: Gene mutation
  16. ACYCLOVIR [Concomitant]
     Active Substance: ACYCLOVIR
     Indication: Coxsackie virus test positive
     Dosage: 10 MILLIGRAM/KILOGRAM, Q8H, EVERY 8 HOURS
     Route: 042

REACTIONS (3)
  - Ileus paralytic [Unknown]
  - Multiple-drug resistance [Unknown]
  - Off label use [Unknown]
